FAERS Safety Report 22347812 (Version 1)
Quarter: 2023Q2

REPORT INFORMATION
  Report Type: Spontaneous
  Country: US (occurrence: US)
  Receive Date: 20230522
  Receipt Date: 20230522
  Transmission Date: 20230721
  Serious: Yes (Other)
  Sender: FDA-Public Use
  Company Number: US-BRISTOL-MYERS SQUIBB COMPANY-2023-068593

PATIENT
  Age: 37 Year
  Sex: Male

DRUGS (3)
  1. NIVOLUMAB [Suspect]
     Active Substance: NIVOLUMAB
     Indication: Malignant melanoma
     Dosage: 3 CYCLES
  2. NIVOLUMAB [Suspect]
     Active Substance: NIVOLUMAB
     Dosage: TWO CYCLES OF IPILIMUMAB PLUS NIVOLUMAB
  3. IPILIMUMAB [Suspect]
     Active Substance: IPILIMUMAB
     Indication: Malignant melanoma
     Dosage: TWO CYCLES WITH NIVOLUMAB

REACTIONS (1)
  - Immune-mediated enterocolitis [Recovered/Resolved]
